FAERS Safety Report 22992844 (Version 4)
Quarter: 2025Q1

REPORT INFORMATION
  Report Type: Report from Study
  Country: ES (occurrence: ES)
  Receive Date: 20230927
  Receipt Date: 20250331
  Transmission Date: 20250408
  Serious: Yes (Other)
  Sender: AUROBINDO
  Company Number: ES-PFIZER INC-PV202300155958

PATIENT

DRUGS (3)
  1. TAMSULOSIN [Interacting]
     Active Substance: TAMSULOSIN
     Indication: Product used for unknown indication
     Route: 065
     Dates: start: 2022
  2. PAXLOVID [Interacting]
     Active Substance: NIRMATRELVIR\RITONAVIR
     Indication: COVID-19 treatment
     Route: 065
     Dates: start: 2022, end: 2022
  3. PAXLOVID [Interacting]
     Active Substance: NIRMATRELVIR\RITONAVIR
     Indication: COVID-19

REACTIONS (6)
  - Acute kidney injury [Unknown]
  - Drug interaction [Unknown]
  - Labelled drug-drug interaction issue [Unknown]
  - Diarrhoea [Unknown]
  - Hypotension [Unknown]
  - Hypocalcaemia [Unknown]

NARRATIVE: CASE EVENT DATE: 20220101
